FAERS Safety Report 6857636-8 (Version None)
Quarter: 2010Q3

REPORT INFORMATION
  Report Type: 
  Country: None (occurrence: None)
  Receive Date: 20100719
  Receipt Date: 20080319
  Transmission Date: 20110219
  Serious: No
  Sender: FDA-Public Use
  Company Number: US-PFIZER INC-2008008884

PATIENT
  Sex: Female
  Weight: 68 kg

DRUGS (6)
  1. CHANTIX [Suspect]
     Indication: SMOKING CESSATION THERAPY
     Route: 048
     Dates: start: 20080120, end: 20080121
  2. LYRICA [Concomitant]
  3. ESTROPIPATE [Concomitant]
  4. VITAMINS [Concomitant]
  5. FISH OIL [Concomitant]
  6. GARLIC [Concomitant]

REACTIONS (2)
  - ANXIETY [None]
  - URTICARIA [None]
